FAERS Safety Report 25262507 (Version 2)
Quarter: 2025Q2

REPORT INFORMATION
  Report Type: Spontaneous
  Country: SI (occurrence: SI)
  Receive Date: 20250502
  Receipt Date: 20250616
  Transmission Date: 20250716
  Serious: Yes (Other)
  Sender: AMGEN
  Company Number: SI-AMGEN-SVNSP2025083631

PATIENT
  Age: 71 Year
  Sex: Female

DRUGS (1)
  1. PROLIA [Suspect]
     Active Substance: DENOSUMAB
     Indication: Osteoporosis
     Dosage: 60 MILLIGRAM, Q6MO
     Route: 058
     Dates: start: 2019

REACTIONS (5)
  - Lumbar vertebral fracture [Unknown]
  - Thoracic vertebral fracture [Unknown]
  - Product dose omission issue [Unknown]
  - Tooth disorder [Unknown]
  - Product communication issue [Unknown]

NARRATIVE: CASE EVENT DATE: 20201201
